FAERS Safety Report 7022428-6 (Version None)
Quarter: 2010Q3

REPORT INFORMATION
  Report Type: 
  Country: None (occurrence: None)
  Receive Date: 20100930
  Receipt Date: 20100927
  Transmission Date: 20110219
  Serious: Yes (Other)
  Sender: FDA-Public Use
  Company Number: AT-ROCHE-727965

PATIENT
  Sex: Male

DRUGS (1)
  1. AVASTIN [Suspect]
     Route: 042
     Dates: start: 20100609

REACTIONS (4)
  - GINGIVITIS [None]
  - JOINT SWELLING [None]
  - POLYARTHRITIS [None]
  - PULPITIS DENTAL [None]
